FAERS Safety Report 10257265 (Version 2)
Quarter: 2014Q2

REPORT INFORMATION
  Report Type: Spontaneous
  Country: US (occurrence: US)
  Receive Date: 20140625
  Receipt Date: 20140625
  Transmission Date: 20141212
  Serious: Yes (Death, Hospitalization)
  Sender: FDA-Public Use
  Company Number: US-AMGEN-USASP2014041270

PATIENT
  Age: 56 Year
  Sex: Female
  Weight: 68.93 kg

DRUGS (12)
  1. PROLIA [Suspect]
     Indication: OSTEOPOROSIS POSTMENOPAUSAL
     Dosage: 60 MG, Q6MO
     Route: 058
     Dates: start: 20120706, end: 20130121
  2. LINZESS [Concomitant]
     Dosage: 145 MUG, QD
     Route: 065
  3. MIRALAX                            /00754501/ [Concomitant]
     Dosage: 17 G, QD
  4. TRIAMCINOLONE ACETONIDE [Concomitant]
     Indication: ERYTHEMA
  5. MACROBID                           /00024401/ [Concomitant]
     Dosage: 1 DF, QD
     Route: 048
  6. EFFEXOR [Concomitant]
     Dosage: 150 MG, QD
  7. NEURONTIN [Concomitant]
     Dosage: 1 DF FOUR TIMES A DAY
  8. CALCIUM CARBONATE [Concomitant]
     Dosage: 600 MG, BID
  9. VITAMIN D                          /00107901/ [Concomitant]
     Dosage: 2000 UNIT, QD
  10. COPAXONE [Concomitant]
     Dosage: 20 MUG/ML, INJECTED DAILY
  11. BACLOFEN [Concomitant]
     Dosage: 20 MG, TAB FOUR TIMES A DAY
  12. VALIUM [Concomitant]
     Dosage: 10 MG TABLET (HALF TABLET TWICE DAILY , 1 TABLET AT BEDTIME

REACTIONS (4)
  - Pulmonary embolism [Fatal]
  - Multiple sclerosis [Fatal]
  - Immobilisation prolonged [Fatal]
  - Bone density decreased [Unknown]
